FAERS Safety Report 16015729 (Version 3)
Quarter: 2019Q1

REPORT INFORMATION
  Report Type: Report from Study
  Country: US (occurrence: US)
  Receive Date: 20190228
  Receipt Date: 20190327
  Transmission Date: 20190418
  Serious: Yes (Other)
  Sender: FDA-Public Use
  Company Number: US-PFIZER INC-2019064841

PATIENT
  Age: 43 Year
  Sex: Female

DRUGS (2)
  1. IBRANCE [Suspect]
     Active Substance: PALBOCICLIB
     Indication: BREAST CANCER FEMALE
     Dosage: 125 MG, CYCLIC (DAILY, 21 DAYS, THEN 7 DAYS OFF)
     Route: 048
     Dates: start: 20190201
  2. FEMARA [Suspect]
     Active Substance: LETROZOLE
     Dosage: UNK

REACTIONS (13)
  - Fatigue [Not Recovered/Not Resolved]
  - Leukopenia [Recovering/Resolving]
  - White blood cell count decreased [Not Recovered/Not Resolved]
  - Decreased appetite [Unknown]
  - Diarrhoea [Unknown]
  - Chills [Unknown]
  - Neuropathy peripheral [Unknown]
  - Bone marrow failure [Unknown]
  - Rash pruritic [Recovered/Resolved]
  - Product dose omission [Unknown]
  - Hypoaesthesia [Unknown]
  - Paraesthesia [Unknown]
  - Nausea [Recovered/Resolved]

NARRATIVE: CASE EVENT DATE: 2019
